FAERS Safety Report 16576610 (Version 1)
Quarter: 2019Q3

REPORT INFORMATION
  Report Type: Spontaneous
  Country: US (occurrence: US)
  Receive Date: 20190716
  Receipt Date: 20190716
  Transmission Date: 20191004
  Serious: Yes (Hospitalization)
  Sender: FDA-Public Use
  Company Number: US-APOTEX-2019AP018218

PATIENT
  Age: 72 Year
  Sex: Male

DRUGS (4)
  1. GEMCITABINE. [Suspect]
     Active Substance: GEMCITABINE
     Indication: TRANSITIONAL CELL CARCINOMA
  2. CISPLATIN. [Suspect]
     Active Substance: CISPLATIN
     Indication: NEOADJUVANT THERAPY
     Dosage: UNK, 3 CYCLES
     Route: 065
  3. CISPLATIN. [Suspect]
     Active Substance: CISPLATIN
     Indication: TRANSITIONAL CELL CARCINOMA
  4. GEMCITABINE. [Suspect]
     Active Substance: GEMCITABINE
     Indication: NEOADJUVANT THERAPY
     Dosage: UNK, 3 CYCLES
     Route: 065

REACTIONS (3)
  - Fatigue [Unknown]
  - Gastrointestinal ulcer [Recovered/Resolved]
  - Anaemia [Unknown]
